FAERS Safety Report 14699289 (Version 1)
Quarter: 2018Q1

REPORT INFORMATION
  Report Type: Spontaneous
  Country: US (occurrence: US)
  Receive Date: 20180328
  Receipt Date: 20180328
  Transmission Date: 20180509
  Serious: Yes (Hospitalization)
  Sender: FDA-Public Use
  Company Number: None

PATIENT
  Age: 70 Year
  Sex: Female

DRUGS (13)
  1. MOVANTIK [Concomitant]
     Active Substance: NALOXEGOL OXALATE
  2. OXYCODONE [Concomitant]
     Active Substance: OXYCODONE
  3. ROSUVASTATIN. [Concomitant]
     Active Substance: ROSUVASTATIN
  4. ACTEMRA [Suspect]
     Active Substance: TOCILIZUMAB
     Indication: RHEUMATOID ARTHRITIS
     Route: 058
     Dates: start: 20170505
  5. EAZOPCLONE [Concomitant]
  6. CELECOXIB. [Concomitant]
     Active Substance: CELECOXIB
  7. TRAMIT [Concomitant]
  8. DULOXETINE. [Concomitant]
     Active Substance: DULOXETINE
  9. OBLECOXIBSYMBOCT [Concomitant]
  10. VENTOLIN [Concomitant]
     Active Substance: ALBUTEROL SULFATE
  11. AEROCHAMBER [Concomitant]
     Active Substance: DEVICE
  12. TRAMT [Concomitant]
  13. OXYCONTIN [Concomitant]
     Active Substance: OXYCODONE HYDROCHLORIDE

REACTIONS (3)
  - Large intestine perforation [None]
  - Diarrhoea [None]
  - Abdominal infection [None]

NARRATIVE: CASE EVENT DATE: 20180312
